FAERS Safety Report 8244997-0 (Version None)
Quarter: 2012Q1

REPORT INFORMATION
  Report Type: 
  Country: None (occurrence: None)
  Receive Date: 20120329
  Receipt Date: 20120320
  Transmission Date: 20120608
  Serious: Yes (Other)
  Sender: FDA-Public Use
  Company Number: ZA-ASTRAZENECA-2012SE13109

PATIENT
  Age: 23714 Day
  Sex: Male

DRUGS (2)
  1. CRESTOR [Suspect]
     Route: 048
     Dates: start: 20120213
  2. BEZAFIBRATE [Concomitant]
     Route: 048
     Dates: start: 20120213

REACTIONS (2)
  - OFF LABEL USE [None]
  - BLOOD TRIGLYCERIDES INCREASED [None]
